FAERS Safety Report 11325342 (Version 1)
Quarter: 2015Q3

REPORT INFORMATION
  Report Type: Report from Study
  Country: NL (occurrence: NL)
  Receive Date: 20150730
  Receipt Date: 20150730
  Transmission Date: 20151125
  Serious: Yes (Hospitalization)
  Sender: FDA-Public Use
  Company Number: NL-ABBVIE-15P-114-1418159-00

PATIENT
  Age: 67 Year
  Sex: Male

DRUGS (6)
  1. DUODOPA [Suspect]
     Active Substance: CARBIDOPA\LEVODOPA
     Indication: PARKINSON^S DISEASE
     Dosage: SEE NARRATIVE
     Route: 050
     Dates: start: 20150518
  2. MOVICOLON [Concomitant]
     Active Substance: POLYETHYLENE GLYCOL 3350\POTASSIUM CHLORIDE\SODIUM BICARBONATE\SODIUM CHLORIDE
     Indication: PRODUCT USED FOR UNKNOWN INDICATION
     Route: 065
  3. DUODOPA [Suspect]
     Active Substance: CARBIDOPA\LEVODOPA
     Dosage: SEE NARRATIVE
     Route: 050
  4. GABAPENTIN. [Concomitant]
     Active Substance: GABAPENTIN
     Indication: PRODUCT USED FOR UNKNOWN INDICATION
     Route: 065
     Dates: start: 20150623, end: 20150715
  5. METFORMINE [Concomitant]
     Active Substance: METFORMIN HYDROCHLORIDE
     Indication: PRODUCT USED FOR UNKNOWN INDICATION
     Dosage: 500 MG
     Route: 065
  6. DUODOPA [Suspect]
     Active Substance: CARBIDOPA\LEVODOPA
     Dosage: CONTINUOUS DOSE FROM 7.6 TO 7.9 AND THE NIGHT DOSE FROM 5.2 TO 5.4
     Route: 050

REACTIONS (20)
  - Unevaluable event [Unknown]
  - Hyperhidrosis [Not Recovered/Not Resolved]
  - Constipation [Unknown]
  - Flat affect [Not Recovered/Not Resolved]
  - Fear [Not Recovered/Not Resolved]
  - Restless legs syndrome [Not Recovered/Not Resolved]
  - Musculoskeletal stiffness [Unknown]
  - Hyperkinesia [Not Recovered/Not Resolved]
  - Musculoskeletal stiffness [Not Recovered/Not Resolved]
  - Hallucination [Recovering/Resolving]
  - On and off phenomenon [Not Recovered/Not Resolved]
  - Nausea [Not Recovered/Not Resolved]
  - On and off phenomenon [Unknown]
  - Diarrhoea [Not Recovered/Not Resolved]
  - Fall [Unknown]
  - Tremor [Not Recovered/Not Resolved]
  - Drug effect incomplete [Unknown]
  - Insomnia [Not Recovered/Not Resolved]
  - Depression [Not Recovered/Not Resolved]
  - Stoma site erythema [Not Recovered/Not Resolved]

NARRATIVE: CASE EVENT DATE: 20150624
